FAERS Safety Report 15742604 (Version 1)
Quarter: 2018Q4

REPORT INFORMATION
  Report Type: Report from Study
  Country: AU (occurrence: AU)
  Receive Date: 20181219
  Receipt Date: 20181219
  Transmission Date: 20190205
  Serious: Yes (Hospitalization)
  Sender: FDA-Public Use
  Company Number: AU-BIOGEN-2017BI00461909

PATIENT
  Age: 37 Year
  Sex: Female

DRUGS (3)
  1. PLEGRIDY [Suspect]
     Active Substance: PEGINTERFERON BETA-1A
     Route: 058
  2. PLEGRIDY [Suspect]
     Active Substance: PEGINTERFERON BETA-1A
     Indication: MULTIPLE SCLEROSIS
     Route: 058
     Dates: start: 20170918, end: 20171002
  3. PLEGRIDY [Suspect]
     Active Substance: PEGINTERFERON BETA-1A
     Route: 058
     Dates: start: 20171003

REACTIONS (22)
  - Multiple sclerosis relapse [Not Recovered/Not Resolved]
  - Restlessness [Unknown]
  - Dyspepsia [Recovered/Resolved]
  - Pain [Recovered/Resolved]
  - Stress [Unknown]
  - Injection site erythema [Not Recovered/Not Resolved]
  - Nausea [Recovered/Resolved]
  - Viral infection [Not Recovered/Not Resolved]
  - Treatment noncompliance [Unknown]
  - Injection site induration [Not Recovered/Not Resolved]
  - Influenza like illness [Recovered/Resolved with Sequelae]
  - Chills [Recovered/Resolved]
  - Fatigue [Not Recovered/Not Resolved]
  - Anxiety [Recovered/Resolved]
  - Vomiting [Not Recovered/Not Resolved]
  - Headache [Recovered/Resolved]
  - Feeling abnormal [Recovered/Resolved]
  - Injection site pruritus [Not Recovered/Not Resolved]
  - Hyperhidrosis [Not Recovered/Not Resolved]
  - Insomnia [Not Recovered/Not Resolved]
  - Inappropriate schedule of product administration [Unknown]
  - Eating disorder [Unknown]

NARRATIVE: CASE EVENT DATE: 20170918
